FAERS Safety Report 25013492 (Version 1)
Quarter: 2025Q1

REPORT INFORMATION
  Report Type: Spontaneous
  Country: FR (occurrence: FR)
  Receive Date: 20250226
  Receipt Date: 20250226
  Transmission Date: 20250409
  Serious: Yes (Hospitalization, Other)
  Sender: CHEPLAPHARM
  Company Number: None

PATIENT
  Age: 61 Year
  Sex: Female
  Weight: 77 kg

DRUGS (23)
  1. CLONAZEPAM [Suspect]
     Active Substance: CLONAZEPAM
     Indication: Premedication
     Dosage: DOSE FORM: SOLUTIONS FOR DILUTION?IN AMPOULES; 2 MG/D?DAILY DOSE: 2 MILLIGRAM
     Route: 042
     Dates: start: 20241212, end: 20241216
  2. BUSULFAN [Suspect]
     Active Substance: BUSULFAN
     Indication: Central nervous system lymphoma
     Dosage: DOSE FORM: DILUTABLE SOLUTION FOR INFUSION; 49.2 MG/D?DAILY DOSE: 49.2 MILLIGRAM
     Route: 042
     Dates: start: 20241213, end: 20241215
  3. BISACODYL [Suspect]
     Active Substance: BISACODYL
     Indication: Constipation
     Route: 048
     Dates: start: 20241213, end: 20241216
  4. THIOTEPA [Suspect]
     Active Substance: THIOTEPA
     Indication: Central nervous system lymphoma
     Dosage: DAILY DOSE: 440 MILLIGRAM
     Route: 042
     Dates: start: 20241210, end: 20241212
  5. MESNA [Suspect]
     Active Substance: MESNA
     Dates: start: 20241216
  6. CYCLOPHOSPHAMIDE [Suspect]
     Active Substance: CYCLOPHOSPHAMIDE
     Indication: Central nervous system lymphoma
     Dates: start: 20241216
  7. PREDNISOLONE SODIUM METASULFOBENZOATE [Concomitant]
     Active Substance: PREDNISOLONE SODIUM METAZOATE
  8. AMPHOTERICIN B [Concomitant]
     Active Substance: AMPHOTERICIN B
  9. HEPARIN [Concomitant]
     Active Substance: HEPARIN SODIUM
  10. RITUXIMAB [Concomitant]
     Active Substance: RITUXIMAB
     Dates: start: 202405, end: 202411
  11. METHOTREXATE [Concomitant]
     Active Substance: METHOTREXATE
     Dates: start: 202405, end: 202411
  12. PROCARBAZINE [Concomitant]
     Active Substance: PROCARBAZINE
     Dates: start: 202405, end: 202411
  13. VINCRISTINE [Concomitant]
     Active Substance: VINCRISTINE
     Dates: start: 202405, end: 202411
  14. LEUCOVORIN CALCIUM [Concomitant]
     Active Substance: LEUCOVORIN CALCIUM
  15. INSULIN GLARGINE [Concomitant]
     Active Substance: INSULIN GLARGINE
  16. TRIMEBUTINE MALEATE [Concomitant]
     Active Substance: TRIMEBUTINE MALEATE
  17. POLYETHYLENE GLYCOLS [Concomitant]
     Active Substance: POLYETHYLENE GLYCOLS
  18. COTRIMOXAZOLE [Concomitant]
     Active Substance: SULFAMETHOXAZOLE\TRIMETHOPRIM
  19. LANSOPRAZOLE [Concomitant]
     Active Substance: LANSOPRAZOLE
  20. VALACYCLOVIR HYDROCHLORIDE [Concomitant]
     Active Substance: VALACYCLOVIR HYDROCHLORIDE
  21. ONDANSETRON [Concomitant]
     Active Substance: ONDANSETRON
  22. ACETAMINOPHEN [Concomitant]
     Active Substance: ACETAMINOPHEN
  23. APREPITANT [Concomitant]
     Active Substance: APREPITANT

REACTIONS (5)
  - Symmetrical drug-related intertriginous and flexural exanthema [Recovered/Resolved]
  - Septic shock [Recovering/Resolving]
  - Graft versus host disease [Recovering/Resolving]
  - Fungaemia [Recovering/Resolving]
  - Mucosal inflammation [Unknown]

NARRATIVE: CASE EVENT DATE: 20241216
